FAERS Safety Report 13517460 (Version 1)
Quarter: 2017Q2

REPORT INFORMATION
  Report Type: Spontaneous
  Country: US (occurrence: US)
  Receive Date: 20170505
  Receipt Date: 20170505
  Transmission Date: 20170830
  Serious: Yes (Other)
  Sender: FDA-Public Use
  Company Number: None

PATIENT
  Age: 71 Year
  Sex: Female
  Weight: 59.47 kg

DRUGS (1)
  1. GABAPENTIN 100MG [Suspect]
     Active Substance: GABAPENTIN
     Indication: PAIN IN EXTREMITY
     Route: 048
     Dates: start: 20170213, end: 20170304

REACTIONS (7)
  - Depression [None]
  - Feeling abnormal [None]
  - Fear [None]
  - Anger [None]
  - Mental impairment [None]
  - Agitation [None]
  - Diarrhoea [None]

NARRATIVE: CASE EVENT DATE: 20170304
